FAERS Safety Report 5958521-6 (Version None)
Quarter: 2008Q4

REPORT INFORMATION
  Report Type: 
  Country: None (occurrence: None)
  Receive Date: 20081119
  Receipt Date: 20081107
  Transmission Date: 20090506
  Serious: Yes (Death, Hospitalization)
  Sender: FDA-Public Use
  Company Number: GB-PFIZER INC-2008071958

PATIENT
  Sex: Male
  Weight: 79 kg

DRUGS (7)
  1. SU-011,248 [Suspect]
     Indication: RENAL CELL CARCINOMA
     Route: 048
     Dates: start: 20060323, end: 20080801
  2. METFORMIN HCL [Concomitant]
  3. LANSOPRAZOLE [Concomitant]
     Route: 048
     Dates: end: 20080825
  4. AMLODIPINE [Concomitant]
     Route: 048
     Dates: end: 20080823
  5. ATORVASTATIN CALCIUM [Concomitant]
     Route: 048
     Dates: end: 20080824
  6. PERINDOPRIL [Concomitant]
     Route: 048
     Dates: end: 20080825
  7. GLYBURIDE [Concomitant]
     Route: 048
     Dates: end: 20080823

REACTIONS (1)
  - MYOCARDIAL INFARCTION [None]
